FAERS Safety Report 14519826 (Version 4)
Quarter: 2018Q3

REPORT INFORMATION
  Report Type: Spontaneous
  Country: US (occurrence: US)
  Receive Date: 20180212
  Receipt Date: 20180910
  Transmission Date: 20181010
  Serious: Yes (Other)
  Sender: FDA-Public Use
  Company Number: US-SUNOVION-2018SUN000344

PATIENT

DRUGS (2)
  1. LATUDA [Suspect]
     Active Substance: LURASIDONE HYDROCHLORIDE
     Dosage: UNK
     Route: 048
  2. TRAZODONE [Concomitant]
     Active Substance: TRAZODONE HYDROCHLORIDE
     Indication: INITIAL INSOMNIA

REACTIONS (9)
  - Insomnia [Unknown]
  - Feeling abnormal [Unknown]
  - Depression [Recovering/Resolving]
  - Akathisia [Unknown]
  - Suicidal ideation [Unknown]
  - Self-medication [Unknown]
  - Drug effect incomplete [Not Recovered/Not Resolved]
  - Somnolence [Unknown]
  - Crying [Unknown]
